FAERS Safety Report 21997636 (Version 2)
Quarter: 2023Q1

REPORT INFORMATION
  Report Type: Report from Study
  Country: US (occurrence: US)
  Receive Date: 20230216
  Receipt Date: 20230328
  Transmission Date: 20230418
  Serious: Yes (Hospitalization, Other)
  Sender: FDA-Public Use
  Company Number: US-AMGEN-USASL2023024348

PATIENT
  Age: 48 Year
  Sex: Female

DRUGS (6)
  1. OTEZLA [Suspect]
     Active Substance: APREMILAST
     Indication: Psoriasis
     Dosage: 30 MILLIGRAM, BID
     Route: 065
     Dates: start: 20190709, end: 202209
  2. OTEZLA [Suspect]
     Active Substance: APREMILAST
     Dosage: 30 MILLIGRAM, BID
     Route: 065
  3. TALTZ [Concomitant]
     Active Substance: IXEKIZUMAB
     Dosage: UNK UNK, Q4WK
     Route: 065
     Dates: start: 202206, end: 202209
  4. BUSPIRONE [Concomitant]
     Active Substance: BUSPIRONE HYDROCHLORIDE
     Dosage: UNK
     Route: 065
  5. OMEPRAZOLE [Concomitant]
     Active Substance: OMEPRAZOLE
     Dosage: UNK
     Route: 065
  6. Biotone [Concomitant]
     Dosage: UNK (4- 5 TIMES WEEKLY)
     Route: 065

REACTIONS (6)
  - Staphylococcal infection [Unknown]
  - Pneumonia [Unknown]
  - Infection [Unknown]
  - COVID-19 [Unknown]
  - Psoriasis [Unknown]
  - Alopecia [Unknown]

NARRATIVE: CASE EVENT DATE: 20211201
